FAERS Safety Report 7694508-3 (Version None)
Quarter: 2011Q3

REPORT INFORMATION
  Report Type: 
  Country: None (occurrence: None)
  Receive Date: 20110816
  Receipt Date: 20110804
  Transmission Date: 20111222
  Serious: Yes (Hospitalization)
  Sender: FDA-Public Use
  Company Number: 00000405

PATIENT
  Age: 66 Year
  Sex: Female

DRUGS (1)
  1. LOSARTAN POTASSIUM [Suspect]

REACTIONS (4)
  - PRODUCT SUBSTITUTION ISSUE [None]
  - THROAT TIGHTNESS [None]
  - BLOOD PRESSURE INCREASED [None]
  - BURNING SENSATION [None]
